FAERS Safety Report 11533836 (Version 2)
Quarter: 2015Q4

REPORT INFORMATION
  Report Type: Spontaneous
  Country: US (occurrence: US)
  Receive Date: 20150922
  Receipt Date: 20151102
  Transmission Date: 20160304
  Serious: Yes (Other)
  Sender: FDA-Public Use
  Company Number: PHEH2015US018155

PATIENT
  Age: 38 Year
  Sex: Female
  Weight: 81.63 kg

DRUGS (4)
  1. ATORVASTATIN [Concomitant]
     Active Substance: ATORVASTATIN
     Indication: BLOOD CHOLESTEROL ABNORMAL
     Dosage: 10 MG, QD
     Route: 048
  2. GILENYA [Suspect]
     Active Substance: FINGOLIMOD HYDROCHLORIDE
     Indication: RELAPSING-REMITTING MULTIPLE SCLEROSIS
     Dosage: 0.5 MG, QD
     Route: 048
     Dates: start: 20150619, end: 20150914
  3. METFORMIN [Concomitant]
     Active Substance: METFORMIN HYDROCHLORIDE
     Indication: DIABETES MELLITUS
     Dosage: 1000 MG, BID
     Route: 048
  4. NORTRIPTYLINE [Concomitant]
     Active Substance: NORTRIPTYLINE
     Indication: NEUROPATHY PERIPHERAL
     Dosage: 10 MG, QD
     Route: 048

REACTIONS (1)
  - Macular oedema [Recovering/Resolving]

NARRATIVE: CASE EVENT DATE: 20150912
